FAERS Safety Report 18733130 (Version 2)
Quarter: 2021Q1

REPORT INFORMATION
  Report Type: Other
  Country: JP (occurrence: JP)
  Receive Date: 20210112
  Receipt Date: 20210115
  Transmission Date: 20210419
  Serious: Yes (Other)
  Sender: FDA-Public Use
  Company Number: JP-ROCHE-2748027

PATIENT
  Age: 49 Year
  Sex: Female

DRUGS (1)
  1. XELODA [Suspect]
     Active Substance: CAPECITABINE
     Indication: OESOPHAGEAL CARCINOMA
     Dosage: DOSAGE IS UNCERTAIN.
     Route: 048

REACTIONS (3)
  - Intentional product use issue [Unknown]
  - Metastases to lung [Unknown]
  - Off label use [Unknown]
